FAERS Safety Report 4988419-1 (Version None)
Quarter: 2006Q2

REPORT INFORMATION
  Report Type: 
  Country: None (occurrence: None)
  Receive Date: 20060502
  Receipt Date: 20051220
  Transmission Date: 20061013
  Serious: Yes (Hospitalization)
  Sender: FDA-Public Use
  Company Number: US-BRISTOL-MYERS SQUIBB COMPANY-13224084

PATIENT
  Sex: Female

DRUGS (8)
  1. CARBIDOPA [Suspect]
  2. PLAVIX [Suspect]
  3. REQUIP [Suspect]
  4. LABETALOL [Suspect]
  5. DILTIAZEM HCL [Suspect]
  6. ZOLOFT [Suspect]
  7. ASPIRIN [Suspect]
  8. HYZAAR [Suspect]

REACTIONS (2)
  - HIP FRACTURE [None]
  - OSTEOARTHRITIS [None]
